FAERS Safety Report 9671963 (Version 1)
Quarter: 2013Q4

REPORT INFORMATION
  Report Type: Other
  Country: US (occurrence: US)
  Receive Date: 20131106
  Receipt Date: 20131106
  Transmission Date: 20140711
  Serious: No
  Sender: FDA-Public Use
  Company Number: US-ENDO PHARMACEUTICALS INC.-LISI20110025

PATIENT
  Age: 73 Year
  Sex: Male

DRUGS (1)
  1. LISINOPRIL TABLETS [Suspect]
     Indication: HYPERTENSION
     Dosage: UNKNOWN
     Route: 048
     Dates: start: 200907, end: 201007

REACTIONS (1)
  - Blood creatinine increased [Unknown]
